FAERS Safety Report 18126892 (Version 1)
Quarter: 2020Q3

REPORT INFORMATION
  Report Type: Spontaneous
  Country: US (occurrence: US)
  Receive Date: 20200810
  Receipt Date: 20200810
  Transmission Date: 20201103
  Serious: Yes (Other)
  Sender: FDA-Public Use
  Company Number: US-DRREDDYS-USA/USA/20/0125697

PATIENT
  Sex: Female

DRUGS (1)
  1. OLANZAPINE TABLETS 2.5 MG, 5 MG, 7.5 MG, 10 MG [Suspect]
     Active Substance: OLANZAPINE
     Indication: FRAGILE X SYNDROME
     Dosage: REDUCED

REACTIONS (3)
  - Dystonia [Unknown]
  - Withdrawal syndrome [Recovered/Resolved]
  - Oculogyric crisis [Recovered/Resolved]
